FAERS Safety Report 16441942 (Version 1)
Quarter: 2019Q2

REPORT INFORMATION
  Report Type: Report from Study
  Country: None (occurrence: US)
  Receive Date: 20190617
  Receipt Date: 20190617
  Transmission Date: 20190711
  Serious: No
  Sender: FDA-Public Use
  Company Number: US-US WORLDMEDS, LLC-USW201810-001492

PATIENT
  Age: 69 Year
  Sex: Female
  Weight: 61.23 kg

DRUGS (11)
  1. APOKYN [Suspect]
     Active Substance: APOMORPHINE HYDROCHLORIDE
     Indication: PARKINSON^S DISEASE
     Route: 058
     Dates: start: 20181005
  2. LINZESS [Concomitant]
     Active Substance: LINACLOTIDE
  3. CLONAZEPAM. [Concomitant]
     Active Substance: CLONAZEPAM
  4. XADAGO [Concomitant]
     Active Substance: SAFINAMIDE MESYLATE
  5. PROMETHAZINE HYDROCHLORIDE. [Concomitant]
     Active Substance: PROMETHAZINE HYDROCHLORIDE
     Indication: NAUSEA
  6. OXYBUTYNIN. [Concomitant]
     Active Substance: OXYBUTYNIN CHLORIDE
  7. CARBIDOPA/LEVODOPA ER [Concomitant]
     Active Substance: CARBIDOPA\LEVODOPA
     Dosage: 25/100, 4 TIMES A DAY
  8. GABAPENTIN. [Concomitant]
     Active Substance: GABAPENTIN
  9. CARBIDOPA/LEVODOPA CR [Concomitant]
     Dosage: 25/100 MG 1 TABLET AT BEDTIME
  10. FLUDOCORT [Concomitant]
  11. MIDODRINE [Concomitant]
     Active Substance: MIDODRINE

REACTIONS (3)
  - Blood pressure decreased [Recovered/Resolved]
  - Somnolence [Recovered/Resolved]
  - Dizziness postural [Recovered/Resolved]

NARRATIVE: CASE EVENT DATE: 20181005
